FAERS Safety Report 16573036 (Version 1)
Quarter: 2019Q3

REPORT INFORMATION
  Report Type: Spontaneous
  Country: FR (occurrence: FR)
  Receive Date: 20190715
  Receipt Date: 20190715
  Transmission Date: 20191004
  Serious: Yes (Hospitalization)
  Sender: FDA-Public Use
  Company Number: FR-009507513-1907FRA005054

PATIENT
  Age: 81 Year
  Sex: Male
  Weight: 70.5 kg

DRUGS (22)
  1. AMOXICILLIN (+) CLAVULANATE POTASSIUM [Suspect]
     Active Substance: AMOXICILLIN\CLAVULANATE POTASSIUM
     Indication: PNEUMONIA
     Dosage: 3 DOSAGE FORM, QD (1-1-1)
     Route: 042
     Dates: start: 20190427, end: 20190430
  2. SIMVASTATINE SANDOZ [Concomitant]
     Active Substance: SIMVASTATIN
     Indication: HYPERCHOLESTEROLAEMIA
     Dosage: 10 MILLIGRAM, QD
     Route: 048
     Dates: start: 20190419, end: 20190424
  3. CALCIDOSE [Concomitant]
     Indication: HYPOVITAMINOSIS
     Dosage: 1 DOSAGE FORM, QD (1-0-0)
     Route: 048
     Dates: start: 20190427
  4. ACTONEL [Concomitant]
     Active Substance: RISEDRONATE SODIUM
     Indication: OSTEOPOROSIS
     Dosage: 35 MG, QW (1 TABLET ON FRIDAY)
     Route: 048
     Dates: end: 20190419
  5. TRAMADOL LP SANDOZ [Suspect]
     Active Substance: TRAMADOL HYDROCHLORIDE
     Indication: PAIN
     Dosage: 200 MG, QD (1-1-1-1)
     Route: 048
     Dates: start: 20190424, end: 20190425
  6. PRIMPERAN [Suspect]
     Active Substance: METOCLOPRAMIDE HYDROCHLORIDE
     Indication: NAUSEA
     Dosage: 1 DOSAGE FORM, IF NECESSARY
     Route: 042
     Dates: start: 20190427, end: 20190427
  7. PANTOPRAZOLE [Suspect]
     Active Substance: PANTOPRAZOLE
     Indication: PROPHYLAXIS AGAINST GASTROINTESTINAL ULCER
     Dosage: 40 MG, QD (0-0-1)
     Route: 048
     Dates: start: 20190426, end: 20190502
  8. SPASFON-LYOC [Concomitant]
     Active Substance: PHLOROGLUCINOL
     Indication: ABDOMINAL PAIN UPPER
     Dosage: 240 MG, QD (1-1-1)
     Route: 048
     Dates: start: 20190408
  9. DOLIPRANE [Concomitant]
     Active Substance: ACETAMINOPHEN
     Indication: PAIN
     Dosage: 3000 MG, QD (2-2-2)
     Route: 048
     Dates: start: 20190425, end: 20190506
  10. ACTISKENAN [Suspect]
     Active Substance: MORPHINE SULFATE
     Indication: PAIN
     Dosage: 5 MG, IF NECESSARY (MAXIMUM 6 A DAY)
     Route: 048
     Dates: start: 20190426
  11. MOVICOL [Concomitant]
     Active Substance: POLYETHYLENE GLYCOL 3350\POTASSIUM CHLORIDE\SODIUM BICARBONATE\SODIUM CHLORIDE
     Indication: CONSTIPATION
     Dosage: 3 DOSAGE FORM, QD (0-2-1)
     Route: 048
  12. FOSAMAX [Suspect]
     Active Substance: ALENDRONATE SODIUM
     Indication: OSTEOPOROSIS
     Dosage: 70 MG, QD (1 TABLET ON FRIDAY)
     Route: 048
     Dates: start: 20190426
  13. SKENAN [Suspect]
     Active Substance: MORPHINE SULFATE
     Indication: PAIN
     Dosage: 20 MG, QD (1-0-1)
     Route: 048
     Dates: start: 20190426, end: 20190427
  14. KARDEGIC [Suspect]
     Active Substance: ASPIRIN DL-LYSINE
     Indication: CARDIOVASCULAR EVENT PROPHYLAXIS
     Dosage: 75 MG, QD (1-0-0)
     Route: 048
     Dates: start: 20190419
  15. PREDNISONE. [Concomitant]
     Active Substance: PREDNISONE
     Indication: TEMPORAL ARTERITIS
     Dosage: 4 MG, QD (1-0-0)
     Route: 048
  16. LOVENOX [Suspect]
     Active Substance: ENOXAPARIN SODIUM
     Indication: THROMBOSIS
     Dosage: 4000 INTERNATIONAL UNIT, QD (0-0-1)
     Route: 058
     Dates: start: 20190427, end: 20190506
  17. DEBRIDAT [Suspect]
     Active Substance: TRIMEBUTINE MALEATE
     Indication: PAIN
     Dosage: 400 MG, QD (1-0-1)
     Route: 048
     Dates: start: 20190419, end: 20190425
  18. OMEPRAZOLE SANDOZ [Concomitant]
     Active Substance: OMEPRAZOLE
     Indication: PROPHYLAXIS AGAINST GASTROINTESTINAL ULCER
     Dosage: 20 MG, QD (0-0-1)
     Route: 048
     Dates: end: 20190425
  19. AUGMENTIN [Suspect]
     Active Substance: AMOXICILLIN\CLAVULANATE POTASSIUM
     Indication: PNEUMONIA
     Dosage: 3 DOSAGE FORM, QD (1-1-1)
     Route: 048
     Dates: start: 20190426, end: 20190427
  20. PRAVASTATIN SODIUM. [Suspect]
     Active Substance: PRAVASTATIN SODIUM
     Indication: HYPERCHOLESTEROLAEMIA
     Dosage: 10 MG,QD (0-0-1)
     Route: 048
     Dates: start: 20190426, end: 20190502
  21. CACIT VITAMINE D3 [Concomitant]
     Active Substance: CALCIUM CARBONATE\CHOLECALCIFEROL
     Indication: HYPOVITAMINOSIS
     Dosage: 1 DOSAGE FORM, QD (1-0-0)
     Route: 048
     Dates: end: 20190425
  22. DAFALGAN [Concomitant]
     Active Substance: ACETAMINOPHEN
     Indication: PAIN
     Dosage: 4000 MG, QD (1-1-1-1)
     Route: 048
     Dates: end: 20190424

REACTIONS (1)
  - Hepatitis [Not Recovered/Not Resolved]

NARRATIVE: CASE EVENT DATE: 20190430
